FAERS Safety Report 13138293 (Version 1)
Quarter: 2017Q1

REPORT INFORMATION
  Report Type: Spontaneous
  Country: US (occurrence: US)
  Receive Date: 20170123
  Receipt Date: 20170123
  Transmission Date: 20170428
  Serious: No
  Sender: FDA-Public Use
  Company Number: US-UNITED THERAPEUTICS-UNT-2016-010038

PATIENT
  Age: 53 Year
  Sex: Female
  Weight: 104.31 kg

DRUGS (2)
  1. REMODULIN [Suspect]
     Active Substance: TREPROSTINIL
     Indication: PULMONARY HYPERTENSION
     Dosage: 0.0525 ?G/KG, CONTINUIMG
     Route: 041
     Dates: start: 20140630
  2. REMODULIN [Suspect]
     Active Substance: TREPROSTINIL
     Dosage: 0.050 ?G/KG, CONTINUING
     Route: 041

REACTIONS (2)
  - Device use issue [Unknown]
  - Panic reaction [Unknown]

NARRATIVE: CASE EVENT DATE: 20160618
